FAERS Safety Report 15120732 (Version 3)
Quarter: 2018Q3

REPORT INFORMATION
  Report Type: Report from Study
  Country: US (occurrence: US)
  Receive Date: 20180709
  Receipt Date: 20180917
  Transmission Date: 20181010
  Serious: No
  Sender: FDA-Public Use
  Company Number: US-SA-2018SA155735

PATIENT
  Sex: Male

DRUGS (1)
  1. INSULIN GLARGINE/LIXISENATIDE [Suspect]
     Active Substance: INSULIN GLARGINE\LIXISENATIDE
     Indication: TYPE 2 DIABETES MELLITUS
     Dosage: 50 U, UNK; ROUTE: PEN INJECTION
     Route: 065
     Dates: start: 20180521

REACTIONS (3)
  - Ill-defined disorder [Unknown]
  - Blood glucose abnormal [Unknown]
  - Device operational issue [Unknown]
